FAERS Safety Report 4284740-3 (Version None)
Quarter: 2004Q1

REPORT INFORMATION
  Report Type: 
  Country: None (occurrence: None)
  Receive Date: 20040202
  Receipt Date: 20040120
  Transmission Date: 20041129
  Serious: Yes (Other)
  Sender: FDA-Public Use
  Company Number: 6006998

PATIENT
  Age: 44 Year
  Sex: Female

DRUGS (6)
  1. LEVOTHYROXINE SODIUM [Suspect]
     Indication: HYPOTHYROIDISM
     Dosage: 75 MCG (75 MCG 1 IN 1 D)
     Route: 048
     Dates: start: 20030501
  2. VALIUM [Suspect]
     Indication: ANXIETY
     Dosage: 10 MG (5 MG 2 IN 1 D)
     Route: 048
     Dates: start: 20030501
  3. DILTIAZEM HCL [Suspect]
     Dosage: 180 MG (90 MG 2 IN 1 DAY)
     Route: 048
     Dates: start: 20030501
  4. PROZAC [Suspect]
     Indication: DEPRESSION
     Dosage: 40 MG (20 MG 2 IN 1 DAY)
     Route: 048
     Dates: start: 20030501
  5. DRIPTANE               (OXYBUTYNIN HYDROCHLORIDE) [Suspect]
     Indication: URINARY INCONTINENCE
     Dosage: 10 MG (5 MG 2 IN 1 D)
     Route: 048
     Dates: start: 20030501
  6. REPLAX (TABLETS) (ELETRIPTIN HYDROBROMIDE) [Suspect]
     Indication: MIGRAINE
     Dosage: 40 MG
     Route: 048
     Dates: start: 20031107, end: 20031107

REACTIONS (3)
  - AMAUROSIS FUGAX [None]
  - AMNESIA [None]
  - TREATMENT NONCOMPLIANCE [None]
